FAERS Safety Report 9791812 (Version 1)
Quarter: 2014Q1

REPORT INFORMATION
  Report Type: Spontaneous
  Country: JP (occurrence: JP)
  Receive Date: 20140102
  Receipt Date: 20140102
  Transmission Date: 20141002
  Serious: Yes (Other)
  Sender: FDA-Public Use
  Company Number: JP-SA-2013SA134425

PATIENT
  Sex: 0

DRUGS (2)
  1. LASIX [Suspect]
     Indication: POLYURIA
     Route: 065
  2. GLYPHAGEN C [Concomitant]
     Dosage: INTRAVENOUS INJECTION?STRENGTH: 20 MG

REACTIONS (1)
  - Hypernatraemia [Unknown]
